FAERS Safety Report 14114324 (Version 2)
Quarter: 2017Q4

REPORT INFORMATION
  Report Type: Report from Study
  Country: NL (occurrence: NL)
  Receive Date: 20171023
  Receipt Date: 20171023
  Transmission Date: 20180321
  Serious: Yes (Other)
  Sender: FDA-Public Use
  Company Number: NL-TEVA-816476ROM

PATIENT
  Age: 56 Year
  Sex: Female

DRUGS (7)
  1. PREDNISON [Suspect]
     Active Substance: PREDNISONE
     Indication: MULTIPLE SCLEROSIS RELAPSE
     Route: 065
  2. COPAXONE [Suspect]
     Active Substance: GLATIRAMER ACETATE
     Indication: CLINICALLY ISOLATED SYNDROME
  3. CARBASALAATCALCIUM 100 MG [Concomitant]
     Dosage: 100 MILLIGRAM DAILY;
     Route: 065
  4. PERSANTIN 200 MG [Concomitant]
     Dosage: 400 MILLIGRAM DAILY;
     Route: 065
  5. VENLAFAXINE 375 MG [Concomitant]
     Dosage: 375 MILLIGRAM DAILY;
     Route: 065
  6. COPAXONE [Suspect]
     Active Substance: GLATIRAMER ACETATE
     Indication: MULTIPLE SCLEROSIS
     Route: 058
     Dates: start: 20170127
  7. PANTOPRAZOLE SODIUM. [Concomitant]
     Active Substance: PANTOPRAZOLE SODIUM
     Dosage: 40 MILLIGRAM DAILY;
     Route: 065

REACTIONS (2)
  - Multiple sclerosis relapse [Recovering/Resolving]
  - Diverticulitis [Recovered/Resolved]

NARRATIVE: CASE EVENT DATE: 201707
